FAERS Safety Report 8799192 (Version 3)
Quarter: 2012Q4

REPORT INFORMATION
  Report Type: Spontaneous
  Country: GB (occurrence: None)
  Receive Date: 20120914
  Receipt Date: 20121010
  Transmission Date: 20130627
  Serious: Yes (Hospitalization, Other)
  Sender: FDA-Public Use
  Company Number: 1406355

PATIENT
  Age: 72 Year
  Sex: Female

DRUGS (2)
  1. OXALIPLATIN [Suspect]
     Indication: CHEMOTHERAPY
     Dosage: 3 weeks
     Dates: start: 20120214
  2. CAPECITABINE [Suspect]
     Indication: COLORECTAL CANCER METASTATIC
     Dosage: 3 weeks
     Dates: start: 20120214

REACTIONS (7)
  - Disease progression [None]
  - Malaise [None]
  - Diarrhoea [None]
  - Vomiting [None]
  - Toxicity to various agents [None]
  - Gastrointestinal toxicity [None]
  - Colorectal cancer metastatic [None]
